FAERS Safety Report 16571629 (Version 2)
Quarter: 2019Q3

REPORT INFORMATION
  Report Type: Spontaneous
  Country: US (occurrence: US)
  Receive Date: 20190715
  Receipt Date: 20190802
  Transmission Date: 20191004
  Serious: Yes (Other)
  Sender: FDA-Public Use
  Company Number: US-009507513-1907USA003336

PATIENT
  Sex: Female

DRUGS (1)
  1. NEXPLANON [Suspect]
     Active Substance: ETONOGESTREL
     Indication: CONTRACEPTION
     Dosage: 68 MILLIGRAM(1 ROD), ONE TIME
     Route: 059
     Dates: start: 20170505, end: 20190530

REACTIONS (3)
  - Uterine haemorrhage [Unknown]
  - Vaginal infection [Recovered/Resolved]
  - Urinary tract infection [Recovered/Resolved]
